FAERS Safety Report 6582845-5 (Version None)
Quarter: 2010Q1

REPORT INFORMATION
  Report Type: 
  Country: None (occurrence: None)
  Receive Date: 20100216
  Receipt Date: 20100209
  Transmission Date: 20100710
  Serious: Yes (Disabling)
  Sender: FDA-Public Use
  Company Number: CA-SANOFI-AVENTIS-2010SA008147

PATIENT
  Age: 68 Year
  Sex: Male

DRUGS (9)
  1. PLAVIX [Suspect]
     Indication: MYOCARDIAL INFARCTION
     Route: 048
     Dates: start: 20071201, end: 20081201
  2. PLAVIX [Interacting]
     Route: 048
     Dates: start: 20071201, end: 20081201
  3. PREVACID [Interacting]
     Indication: GASTRIC DISORDER
     Route: 048
     Dates: start: 20070101
  4. METOPROLOL TARTRATE [Concomitant]
     Indication: MYOCARDIAL INFARCTION
     Route: 048
     Dates: start: 20010101
  5. METOPROLOL TARTRATE [Concomitant]
     Route: 048
     Dates: start: 20010101
  6. ROSUVASTATIN CALCIUM [Concomitant]
     Indication: MYOCARDIAL INFARCTION
     Route: 048
     Dates: start: 20010101
  7. ROSUVASTATIN CALCIUM [Concomitant]
     Route: 048
     Dates: start: 20010101
  8. ASPIRIN [Concomitant]
     Indication: MYOCARDIAL INFARCTION
     Route: 048
     Dates: start: 20010101
  9. ASPIRIN [Concomitant]
     Route: 048
     Dates: start: 20010101

REACTIONS (3)
  - BLINDNESS UNILATERAL [None]
  - DRUG INTERACTION [None]
  - RETINAL ARTERY THROMBOSIS [None]
